FAERS Safety Report 21653511 (Version 1)
Quarter: 2022Q4

REPORT INFORMATION
  Report Type: Spontaneous
  Country: JP (occurrence: JP)
  Receive Date: 20221129
  Receipt Date: 20221129
  Transmission Date: 20230113
  Serious: Yes (Other)
  Sender: FDA-Public Use
  Company Number: JP-BRISTOL-MYERS SQUIBB COMPANY-2022-143698

PATIENT
  Age: 80 Year
  Sex: Male

DRUGS (3)
  1. ABRAXANE [Suspect]
     Active Substance: PACLITAXEL
     Indication: Squamous cell carcinoma of lung
     Dosage: 14.28 MILLIGRAM(S) (100 MILLIGRAM(S), 1 IN 1 WEEK)
     Route: 041
     Dates: start: 20200130
  2. ABRAXANE [Suspect]
     Active Substance: PACLITAXEL
     Dosage: 7.142 MILLIGRAM(S) (50 MILLIGRAM(S), 1 IN 1 WEEK)
     Route: 041
  3. ABRAXANE [Suspect]
     Active Substance: PACLITAXEL
     Dosage: 4.714 MILLIGRAM(S) (33 MILLIGRAM(S), 1 IN 1 WEEK)??ON DAYS 1 AND 8 OF EACH 28-DAY CYCLE
     Route: 041
     Dates: start: 20200421

REACTIONS (2)
  - Laryngeal oedema [Recovered/Resolved]
  - Dysphonia [Unknown]

NARRATIVE: CASE EVENT DATE: 20200101
